FAERS Safety Report 9879737 (Version 1)
Quarter: 2014Q1

REPORT INFORMATION
  Report Type: Spontaneous
  Country: IT (occurrence: IT)
  Receive Date: 20140206
  Receipt Date: 20140206
  Transmission Date: 20141002
  Serious: Yes (Hospitalization)
  Sender: FDA-Public Use
  Company Number: PHHY2014IT011827

PATIENT
  Age: 66 Year
  Sex: Female

DRUGS (6)
  1. ROSUVASTATIN [Suspect]
     Indication: HYPERLIPIDAEMIA
     Dosage: 10 MG/DAY
  2. WARFARIN [Interacting]
     Dosage: 2.5 MG/DAY
  3. TELMISARTAN [Interacting]
     Dosage: 80 MG/DAY
  4. RANITIDINE [Concomitant]
     Dosage: 150 MG/DAY
     Route: 048
  5. FUROSEMIDE [Concomitant]
     Dosage: 26 MG/DAY
     Route: 048
  6. CARVEDILOL [Concomitant]
     Dosage: 6.25 MG, BID

REACTIONS (9)
  - Renal failure [Recovered/Resolved]
  - Hepatic failure [Recovered/Resolved]
  - Hepatomegaly [Recovered/Resolved]
  - Rhabdomyolysis [Recovered/Resolved]
  - Asthenia [Recovered/Resolved]
  - Myalgia [Recovered/Resolved]
  - Muscular weakness [Recovered/Resolved]
  - Dyskinesia [Recovered/Resolved]
  - Drug interaction [Unknown]
